FAERS Safety Report 10524392 (Version 1)
Quarter: 2014Q4

REPORT INFORMATION
  Report Type: Spontaneous
  Country: US (occurrence: None)
  Receive Date: 20141015
  Receipt Date: 20141015
  Transmission Date: 20150528
  Serious: Yes (Other)
  Sender: FDA-Public Use
  Company Number: PR 1603-JM

PATIENT
  Age: 65 Year
  Sex: Male

DRUGS (5)
  1. IC-GREEN [Suspect]
     Active Substance: INDOCYANINE GREEN
     Indication: VITRECTOMY
     Dosage: INJECTED INTRAOCULARLY
     Dates: start: 20140930, end: 20140930
  2. VITREOUS WASH OUT [Concomitant]
  3. INTRAVITREOUS CEFTAZIDIME [Concomitant]
  4. TOPICAL OFLOXACIN [Concomitant]
  5. VANCOMYCIN [Concomitant]
     Active Substance: VANCOMYCIN

REACTIONS (5)
  - Off label use [None]
  - Product quality issue [None]
  - Visual acuity reduced [None]
  - Pain [None]
  - Post procedural infection [None]

NARRATIVE: CASE EVENT DATE: 20141001
